FAERS Safety Report 11047891 (Version 3)
Quarter: 2015Q4

REPORT INFORMATION
  Report Type: Spontaneous
  Country: US (occurrence: US)
  Receive Date: 20150420
  Receipt Date: 20151222
  Transmission Date: 20160304
  Serious: Yes (Other)
  Sender: FDA-Public Use
  Company Number: US-PFIZER INC-2015128014

PATIENT
  Age: 67 Year
  Sex: Female

DRUGS (41)
  1. VITAMIN B COMPLEX [Concomitant]
     Active Substance: CYANOCOBALAMIN\DEXPANTHENOL\NIACINAMIDE\PYRIDOXINE HYDROCHLORIDE\RIBOFLAVIN 5^-PHOSPHATE SODIUM\THIAMINE HYDROCHLORIDE\VITAMIN B COMPLEX
     Dosage: UNK UNK, DAILY
     Route: 048
     Dates: start: 20150601
  2. POTASSIUM GLUCONATE [Concomitant]
     Active Substance: POTASSIUM GLUCONATE
     Dosage: UNK, DAILY (550 (90) MG TABLET TAKE 1 PO DAILY)
     Route: 048
     Dates: start: 20150512
  3. POTASSIUM GLUCONATE [Concomitant]
     Active Substance: POTASSIUM GLUCONATE
     Dosage: UNK, DAILY (550 (90) MG TABLET TAKE 1 PO DAILY)
     Route: 048
     Dates: start: 20150519
  4. ESTER-C /00008001/ [Concomitant]
     Dosage: 500-200 MG
     Route: 048
     Dates: start: 20150504
  5. FEMARA [Concomitant]
     Active Substance: LETROZOLE
     Indication: HORMONE THERAPY
     Dosage: 25 MG, 1X/DAY
     Route: 048
     Dates: start: 20121009
  6. VITAMIN D3 [Concomitant]
     Active Substance: CHOLECALCIFEROL
     Dosage: 1000 UNITS (TABLET), DAILY
     Route: 048
     Dates: start: 20150519
  7. VITAMIN D3 [Concomitant]
     Active Substance: CHOLECALCIFEROL
     Dosage: 1000 UNITS (TABLET), DAILY
     Route: 048
     Dates: start: 20150601
  8. GLIPIZIDE XL [Concomitant]
     Active Substance: GLIPIZIDE
     Dosage: 2.5 MG, DAILY
     Route: 048
     Dates: start: 20150519
  9. DIFLUCAN [Concomitant]
     Active Substance: FLUCONAZOLE
     Dosage: UNK
     Route: 048
     Dates: start: 20140812, end: 20150504
  10. IBRANCE [Suspect]
     Active Substance: PALBOCICLIB
     Indication: BREAST CANCER METASTATIC
     Dosage: 125 MG, CYCLIC (ONCE DAILY WITH FOOD FOR 21 DAYS, THEN 7 DAYS OFF)
     Route: 048
     Dates: start: 20150216
  11. NYSTATIN. [Concomitant]
     Active Substance: NYSTATIN
     Indication: MUCOSAL INFLAMMATION
     Dosage: 5 ML SWISH, 1/2 SWALLOW
     Dates: start: 20150409
  12. ASPIRIN 81 [Concomitant]
     Dosage: 81 MG, DAILY
     Route: 048
     Dates: start: 20150601
  13. ESTER-C /00008001/ [Concomitant]
     Dosage: 500-200 MG
     Route: 048
     Dates: start: 20150519
  14. MVI [Concomitant]
     Active Substance: VITAMINS
     Dosage: UNK, DAILY
     Route: 048
     Dates: start: 20150519
  15. GLIPIZIDE XL [Concomitant]
     Active Substance: GLIPIZIDE
     Dosage: 2.5 MG, DAILY
     Route: 048
     Dates: start: 20150512
  16. PREDNISONE. [Concomitant]
     Active Substance: PREDNISONE
     Dosage: 10 MG, (1 TABLET, AS DIRECTED)
     Route: 048
     Dates: start: 20150519
  17. FLONASE [Concomitant]
     Active Substance: FLUTICASONE PROPIONATE
     Indication: HYPERSENSITIVITY
     Dosage: 50 UG, AS NEEDED (1 APPLICATION TOPICAL AS NEEDED)
     Route: 061
  18. IBRANCE [Suspect]
     Active Substance: PALBOCICLIB
     Dosage: 75 MG, UNK
     Dates: start: 20150401, end: 20151001
  19. NYSTATIN. [Concomitant]
     Active Substance: NYSTATIN
     Dosage: 5 ML SWISH AND SWALLOW, 2X/DAY
     Dates: start: 20150601
  20. MVI [Concomitant]
     Active Substance: VITAMINS
     Dosage: UNK, DAILY
     Route: 048
     Dates: start: 20150504
  21. MVI [Concomitant]
     Active Substance: VITAMINS
     Dosage: UNK, DAILY
     Route: 048
     Dates: start: 20150601
  22. NYSTATIN. [Concomitant]
     Active Substance: NYSTATIN
     Dosage: 5 ML SWISH AND SWALLOW, 2X/DAY  ()
     Dates: start: 20150504
  23. NYSTATIN. [Concomitant]
     Active Substance: NYSTATIN
     Dosage: 5 ML SWISH AND SWALLOW, 2X/DAY
     Dates: start: 20150512
  24. ASPIRIN 81 [Concomitant]
     Dosage: 81 MG, DAILY
     Route: 048
     Dates: start: 20150512
  25. VITAMIN D3 [Concomitant]
     Active Substance: CHOLECALCIFEROL
     Dosage: 1000 UNITS (TABLET), DAILY
     Route: 048
     Dates: start: 20150512
  26. GLIPIZIDE XL [Concomitant]
     Active Substance: GLIPIZIDE
     Dosage: 2.5 MG, DAILY
     Route: 048
     Dates: start: 20150601
  27. ASPIRIN 81 [Concomitant]
     Dosage: 81 MG, DAILY
     Route: 048
     Dates: start: 20150519
  28. VITAMIN D3 [Concomitant]
     Active Substance: CHOLECALCIFEROL
     Dosage: 1000 UNITS (TABLET), DAILY
     Route: 048
     Dates: start: 20150504
  29. NYSTATIN. [Concomitant]
     Active Substance: NYSTATIN
     Dosage: 5 ML SWISH AND SWALLOW, 2X/DAY
     Dates: start: 20150519
  30. ASPIRIN 81 [Concomitant]
     Dosage: 81 MG, DAILY
     Route: 048
     Dates: start: 20150504
  31. POTASSIUM GLUCONATE [Concomitant]
     Active Substance: POTASSIUM GLUCONATE
     Dosage: UNK, DAILY (550 (90) MG TABLET TAKE 1 PO DAILY)
     Route: 048
     Dates: start: 20150504
  32. ESTER-C /00008001/ [Concomitant]
     Dosage: 500-200 MG
     Route: 048
     Dates: start: 20150512
  33. ESTER-C /00008001/ [Concomitant]
     Dosage: 500-200 MG
     Route: 048
     Dates: start: 20150601
  34. PRAVASTATIN SODIUM. [Concomitant]
     Active Substance: PRAVASTATIN SODIUM
     Dosage: 20 MG, DAILY (1 TABLET  EVERY MIGHT AT BEDTIME)
     Route: 048
     Dates: start: 20150519
  35. PRAVASTATIN SODIUM. [Concomitant]
     Active Substance: PRAVASTATIN SODIUM
     Dosage: 20 MG, DAILY (1 TABLET  EVERY MIGHT AT BEDTIME)
     Route: 048
     Dates: start: 20150601
  36. POTASSIUM GLUCONATE [Concomitant]
     Active Substance: POTASSIUM GLUCONATE
     Dosage: UNK, DAILY (550 (90) MG TABLET TAKE 1 PO DAILY)
     Route: 048
     Dates: start: 20150601
  37. MVI [Concomitant]
     Active Substance: VITAMINS
     Dosage: UNK, DAILY
     Route: 048
     Dates: start: 20150512
  38. GLIPIZIDE XL [Concomitant]
     Active Substance: GLIPIZIDE
     Dosage: 2.5 MG, DAILY
     Route: 048
     Dates: start: 20150504
  39. PRAVASTATIN SODIUM. [Concomitant]
     Active Substance: PRAVASTATIN SODIUM
     Dosage: 20 MG, DAILY (1 TABLET  EVERY MIGHT AT BEDTIME)
     Route: 048
     Dates: start: 20150504
  40. PRAVASTATIN SODIUM. [Concomitant]
     Active Substance: PRAVASTATIN SODIUM
     Dosage: 20 MG, DAILY (1 TABLET  EVERY MIGHT AT BEDTIME)
     Route: 048
     Dates: start: 20150512
  41. PREDNISONE. [Concomitant]
     Active Substance: PREDNISONE
     Dosage: UNK
     Dates: end: 20150601

REACTIONS (10)
  - Erythema [Unknown]
  - Sensory loss [Unknown]
  - Oral candidiasis [Recovering/Resolving]
  - White blood cell count decreased [Recovering/Resolving]
  - Fatigue [Unknown]
  - Deafness unilateral [Unknown]
  - Vertigo [Unknown]
  - Sinusitis [Unknown]
  - Pneumonia [Unknown]
  - Fungal infection [Recovering/Resolving]

NARRATIVE: CASE EVENT DATE: 2015
